FAERS Safety Report 9762420 (Version 1)
Quarter: 2013Q4

REPORT INFORMATION
  Report Type: Spontaneous
  Country: US (occurrence: US)
  Receive Date: 20131216
  Receipt Date: 20131216
  Transmission Date: 20140711
  Serious: No
  Sender: FDA-Public Use
  Company Number: US-BIOGENIDEC-2013BI102981

PATIENT
  Sex: Male

DRUGS (9)
  1. TECFIDERA [Suspect]
     Indication: MULTIPLE SCLEROSIS
     Route: 048
     Dates: start: 20130926
  2. TECFIDERA [Suspect]
     Indication: MULTIPLE SCLEROSIS
     Dates: end: 20131014
  3. PANTOPRAZOLE [Concomitant]
  4. LOSARTAN [Concomitant]
  5. ETODOLAC [Concomitant]
  6. SIMVASTATIN [Concomitant]
  7. ALFUZOSIN [Concomitant]
  8. TYLENOL [Concomitant]
  9. ASPIRIN [Concomitant]

REACTIONS (2)
  - Abdominal discomfort [Unknown]
  - Dyspepsia [Unknown]
